FAERS Safety Report 21170278 (Version 1)
Quarter: 2022Q3

REPORT INFORMATION
  Report Type: Spontaneous
  Country: DK (occurrence: DK)
  Receive Date: 20220804
  Receipt Date: 20220804
  Transmission Date: 20221026
  Serious: Yes (Death)
  Sender: FDA-Public Use
  Company Number: None

PATIENT
  Age: 80 Year
  Sex: Female
  Weight: 56 kg

DRUGS (1)
  1. ALTEPLASE [Suspect]
     Active Substance: ALTEPLASE
     Indication: Thrombolysis
     Route: 042
     Dates: start: 20220712, end: 20220712

REACTIONS (6)
  - Haemorrhage intracranial [Fatal]
  - Mydriasis [Fatal]
  - Haemorrhagic transformation stroke [Fatal]
  - Hypertonia [Fatal]
  - Extensor plantar response [Fatal]
  - Strabismus [Fatal]

NARRATIVE: CASE EVENT DATE: 20220712
